FAERS Safety Report 19212969 (Version 1)
Quarter: 2021Q2

REPORT INFORMATION
  Report Type: Spontaneous
  Country: US (occurrence: US)
  Receive Date: 20210504
  Receipt Date: 20210504
  Transmission Date: 20210717
  Serious: Yes (Hospitalization)
  Sender: FDA-Public Use
  Company Number: US-ROCHE-2568572

PATIENT
  Sex: Male
  Weight: 89.89 kg

DRUGS (6)
  1. GABAPENTIN. [Concomitant]
     Active Substance: GABAPENTIN
  2. AVASTIN [Suspect]
     Active Substance: BEVACIZUMAB
     Indication: NAUSEA
     Route: 042
  3. AVASTIN [Suspect]
     Active Substance: BEVACIZUMAB
     Indication: VOMITING
  4. SENOKOT [Concomitant]
     Active Substance: SENNOSIDES
  5. ACETAMINOPHEN. [Concomitant]
     Active Substance: ACETAMINOPHEN
  6. LOPERAMIDE HCL [Concomitant]
     Active Substance: LOPERAMIDE HYDROCHLORIDE
     Route: 048
     Dates: start: 20200304

REACTIONS (3)
  - Intentional product use issue [Unknown]
  - Gastric haemorrhage [Unknown]
  - Off label use [Unknown]
